FAERS Safety Report 6284797-4 (Version None)
Quarter: 2009Q3

REPORT INFORMATION
  Report Type: 
  Country: None (occurrence: None)
  Receive Date: 20090727
  Receipt Date: 20090715
  Transmission Date: 20100115
  Serious: Yes (Death, Other)
  Sender: FDA-Public Use
  Company Number: US-PFIZER INC-2009225254

PATIENT
  Sex: Male

DRUGS (7)
  1. SUTENT [Suspect]
     Indication: RENAL CANCER
     Dosage: 50 MG, UNK
     Dates: start: 20070501, end: 20090528
  2. ALLOPURINOL [Concomitant]
  3. LIPITOR [Concomitant]
  4. LEXAPRO [Concomitant]
  5. IMDUR [Concomitant]
  6. POTASSIUM CHLORIDE [Concomitant]
  7. LASIX [Concomitant]

REACTIONS (2)
  - CARDIAC ARREST [None]
  - RENAL CANCER [None]
